FAERS Safety Report 7039241-6 (Version None)
Quarter: 2010Q4

REPORT INFORMATION
  Report Type: 
  Country: None (occurrence: None)
  Receive Date: 20101012
  Receipt Date: 20101010
  Transmission Date: 20110411
  Serious: No
  Sender: FDA-Public Use
  Company Number: US-PFIZER INC-2010128542

PATIENT
  Sex: Female
  Weight: 43.537 kg

DRUGS (2)
  1. DEPO-PROVERA [Suspect]
     Indication: CONTRACEPTION
     Dosage: UNK
     Route: 030
     Dates: start: 20100816
  2. ADVIL [Concomitant]
     Indication: BACK PAIN
     Dosage: 400 MG, MONTHLY
     Route: 048

REACTIONS (2)
  - MENORRHAGIA [None]
  - METRORRHAGIA [None]
